FAERS Safety Report 5707381-7 (Version None)
Quarter: 2008Q2

REPORT INFORMATION
  Report Type: 
  Country: None (occurrence: None)
  Receive Date: 20080416
  Receipt Date: 20080319
  Transmission Date: 20081010
  Serious: No
  Sender: FDA-Public Use
  Company Number: US-BOEHRINGER INGELHEIM GMBH, GERMANY-2008-BP-04319BP

PATIENT
  Age: 64 Year
  Sex: Male

DRUGS (8)
  1. ATROVENT HFA [Suspect]
     Indication: CHRONIC OBSTRUCTIVE PULMONARY DISEASE
     Route: 055
     Dates: start: 20080318, end: 20080318
  2. FLOMAX [Suspect]
     Indication: BENIGN PROSTATIC HYPERPLASIA
  3. VERAPAMIL [Concomitant]
  4. CITALOPRAM HYDROBROMIDE [Concomitant]
  5. SIMVASTATIN [Concomitant]
  6. ADVAIR HFA [Concomitant]
  7. ALBUTEROL [Concomitant]
  8. HYDROCHLOROTHIAZIDE [Concomitant]

REACTIONS (5)
  - DRY MOUTH [None]
  - GINGIVAL SWELLING [None]
  - HEADACHE [None]
  - HYPOAESTHESIA [None]
  - NAUSEA [None]
